FAERS Safety Report 15808832 (Version 15)
Quarter: 2025Q1

REPORT INFORMATION
  Report Type: Report from Study
  Country: DE (occurrence: DE)
  Receive Date: 20190110
  Receipt Date: 20250107
  Transmission Date: 20250409
  Serious: Yes (Other)
  Sender: ROCHE
  Company Number: DE-ROCHE-2231540

PATIENT
  Age: 62 Year
  Sex: Male

DRUGS (12)
  1. OCREVUS [Suspect]
     Active Substance: OCRELIZUMAB
     Indication: Secondary progressive multiple sclerosis
     Dosage: 300 MG AT ONCE IN 12 DAYS (300 MG)
     Route: 042
     Dates: start: 20181207, end: 20200616
  2. OCREVUS [Suspect]
     Active Substance: OCRELIZUMAB
     Route: 042
  3. OCREVUS [Suspect]
     Active Substance: OCRELIZUMAB
     Route: 042
     Dates: start: 20191216
  4. OCREVUS [Suspect]
     Active Substance: OCRELIZUMAB
     Route: 042
     Dates: start: 20200616, end: 20200616
  5. CORTISONE [Suspect]
     Active Substance: CORTISONE
     Indication: Product used for unknown indication
     Route: 065
  6. INSULIN NOS [Concomitant]
     Active Substance: INSULIN NOS
  7. INSULIN NOS [Concomitant]
     Active Substance: INSULIN NOS
  8. CIPRALEX [Concomitant]
     Active Substance: ESCITALOPRAM OXALATE
  9. PANTOPRAZOLE SODIUM [Concomitant]
     Active Substance: PANTOPRAZOLE SODIUM
  10. LEVOTHYROXINE SODIUM [Concomitant]
     Active Substance: LEVOTHYROXINE SODIUM
  11. CITALOPRAM [Concomitant]
     Active Substance: CITALOPRAM
  12. TRIMIPRAMINE [Concomitant]
     Active Substance: TRIMIPRAMINE

REACTIONS (21)
  - Nasopharyngitis [Recovered/Resolved]
  - Dizziness [Recovered/Resolved]
  - Arthralgia [Not Recovered/Not Resolved]
  - Blood glucose increased [Recovered/Resolved]
  - Off label use [Unknown]
  - Blood glucose decreased [Unknown]
  - Meniscus injury [Recovered/Resolved]
  - Haematochezia [Recovered/Resolved]
  - White blood cell count decreased [Recovered/Resolved]
  - Initial insomnia [Recovered/Resolved]
  - Middle insomnia [Recovered/Resolved]
  - Sleep talking [Recovered/Resolved]
  - Large intestine polyp [Recovered/Resolved]
  - Fall [Unknown]
  - Bone contusion [Recovered/Resolved]
  - Contusion [Recovered/Resolved]
  - Gait disturbance [Not Recovered/Not Resolved]
  - Noninfective encephalitis [Recovered/Resolved]
  - Diabetes mellitus inadequate control [Recovering/Resolving]
  - Intervertebral disc protrusion [Not Recovered/Not Resolved]
  - Depression [Not Recovered/Not Resolved]

NARRATIVE: CASE EVENT DATE: 20181207
